FAERS Safety Report 17168893 (Version 1)
Quarter: 2019Q4

REPORT INFORMATION
  Report Type: Report from Study
  Country: US (occurrence: US)
  Receive Date: 20191218
  Receipt Date: 20191218
  Transmission Date: 20200122
  Serious: Yes (Other)
  Sender: FDA-Public Use
  Company Number: US-BAUSCH-BL-2019-065368

PATIENT
  Sex: Male

DRUGS (1)
  1. SILIQ [Suspect]
     Active Substance: BRODALUMAB
     Indication: PRODUCT USED FOR UNKNOWN INDICATION
     Dosage: WEEKS 0,1,2 AS DIRECTED, 210 MG/1.5 ML
     Route: 058

REACTIONS (4)
  - Pain [Unknown]
  - Condition aggravated [Unknown]
  - Prostate cancer [Unknown]
  - Pigmentation disorder [Unknown]
